FAERS Safety Report 7957589-5 (Version None)
Quarter: 2011Q4

REPORT INFORMATION
  Report Type: 
  Country: None (occurrence: None)
  Receive Date: 20111205
  Receipt Date: 20111128
  Transmission Date: 20120403
  Serious: Yes (Hospitalization)
  Sender: FDA-Public Use
  Company Number: IT-GLAXOSMITHKLINE-B0767067A

PATIENT
  Sex: Male

DRUGS (3)
  1. PROPAFENONE HCL [Suspect]
     Indication: ATRIAL FIBRILLATION
     Dosage: 425MG PER DAY
     Route: 048
     Dates: start: 20030101, end: 20111112
  2. COUMADIN [Concomitant]
     Dosage: 5MG PER DAY
     Route: 048
  3. FUROSEMIDE [Concomitant]
     Dosage: 25MG PER DAY
     Route: 048

REACTIONS (4)
  - VERTIGO [None]
  - HEADACHE [None]
  - PLATELET COUNT DECREASED [None]
  - CHEST PAIN [None]
